FAERS Safety Report 10931577 (Version 1)
Quarter: 2015Q1

REPORT INFORMATION
  Report Type: Spontaneous
  Country: US (occurrence: US)
  Receive Date: 20150319
  Receipt Date: 20150319
  Transmission Date: 20150721
  Serious: No
  Sender: FDA-Public Use
  Company Number: US-CELGENEUS-USA-2015015134

PATIENT
  Sex: Female
  Weight: 55 kg

DRUGS (3)
  1. THALOMID [Suspect]
     Active Substance: THALIDOMIDE
     Indication: PLASMA CELL MYELOMA
     Route: 048
     Dates: start: 200805
  2. THALOMID [Suspect]
     Active Substance: THALIDOMIDE
     Dosage: 150-50MG
     Route: 048
     Dates: start: 200809
  3. THALOMID [Suspect]
     Active Substance: THALIDOMIDE
     Route: 048
     Dates: start: 201003

REACTIONS (2)
  - Rash [Recovered/Resolved]
  - Adverse drug reaction [Recovered/Resolved]
